FAERS Safety Report 24613556 (Version 5)
Quarter: 2025Q1

REPORT INFORMATION
  Report Type: Spontaneous
  Country: US (occurrence: US)
  Receive Date: 20241113
  Receipt Date: 20250122
  Transmission Date: 20250408
  Serious: No
  Sender: PFIZER
  Company Number: US-PFIZER INC-202400292860

PATIENT
  Age: 12 Year
  Sex: Female
  Weight: 33.9 kg

DRUGS (1)
  1. GENOTROPIN [Suspect]
     Active Substance: SOMATROPIN
     Indication: Short stature
     Dates: start: 202410

REACTIONS (3)
  - Device breakage [Unknown]
  - Device use error [Unknown]
  - Poor quality device used [Unknown]
